FAERS Safety Report 5271541-2 (Version None)
Quarter: 2007Q1

REPORT INFORMATION
  Report Type: 
  Country: None (occurrence: None)
  Receive Date: 20070321
  Receipt Date: 20070307
  Transmission Date: 20070707
  Serious: Yes (Life-Threatening, Hospitalization)
  Sender: FDA-Public Use
  Company Number: US-KINGPHARMUSA00001-K200700028

PATIENT

DRUGS (9)
  1. ALTACE [Suspect]
     Indication: ESSENTIAL HYPERTENSION
     Dosage: 2.5 MG, QD
     Route: 048
     Dates: start: 20051216, end: 20060101
  2. ALTACE [Suspect]
     Dosage: 5 MG, QD
     Route: 048
     Dates: start: 20060101, end: 20061201
  3. ESTRACYT                           /00327002/ [Concomitant]
     Dosage: 80 MG, UNK
     Route: 048
  4. ANAFRANIL [Concomitant]
     Dosage: UNK, UNK
     Route: 048
  5. DICETEL                            /00505101/ [Concomitant]
     Route: 048
     Dates: start: 20061128, end: 20061130
  6. SERESTA [Concomitant]
     Dosage: 30 MG, UNK
     Route: 048
     Dates: end: 20061201
  7. NOCTAMID [Concomitant]
     Route: 048
     Dates: end: 20061120
  8. TAHOR [Concomitant]
     Dosage: 10 MG, UNK
     Route: 048
     Dates: end: 20061201
  9. MUPIDERM [Concomitant]
     Route: 061

REACTIONS (13)
  - ACIDOSIS [None]
  - ANGIOEDEMA [None]
  - ASPHYXIA [None]
  - ATELECTASIS [None]
  - BLOOD BICARBONATE DECREASED [None]
  - BLOOD PH DECREASED [None]
  - BLOOD PRESSURE INCREASED [None]
  - FACE OEDEMA [None]
  - LUNG DISORDER [None]
  - PCO2 INCREASED [None]
  - PHARYNGEAL OEDEMA [None]
  - TACHYCARDIA [None]
  - TONGUE OEDEMA [None]
